FAERS Safety Report 5269713-6 (Version None)
Quarter: 2007Q1

REPORT INFORMATION
  Report Type: 
  Country: None (occurrence: None)
  Receive Date: 20070320
  Receipt Date: 20070307
  Transmission Date: 20070707
  Serious: Yes (Hospitalization)
  Sender: FDA-Public Use
  Company Number: DE-ELI_LILLY_AND_COMPANY-DE200703001641

PATIENT
  Sex: Female

DRUGS (7)
  1. FORTEO [Suspect]
     Indication: OSTEOPOROSIS
     Dosage: 20 UG, DAILY (1/D)
     Route: 058
     Dates: start: 20060201
  2. OXYGESIC [Concomitant]
  3. NOVALGIN [Concomitant]
  4. LEVOTHYROXINE SODIUM [Concomitant]
  5. MTX [Concomitant]
  6. METOCLOPRAMIDE [Concomitant]
  7. CALCIUM D3 [Concomitant]

REACTIONS (3)
  - BLOOD URINE PRESENT [None]
  - NAUSEA [None]
  - VOMITING [None]
